FAERS Safety Report 14181068 (Version 2)
Quarter: 2017Q4

REPORT INFORMATION
  Report Type: Report from Study
  Country: US (occurrence: US)
  Receive Date: 20171112
  Receipt Date: 20171220
  Transmission Date: 20180321
  Serious: Yes (Hospitalization, Other)
  Sender: FDA-Public Use
  Company Number: US-TESARO, INC-US-2017TSO03679

PATIENT

DRUGS (2)
  1. ZEJULA [Suspect]
     Active Substance: NIRAPARIB
     Dosage: 200 MG, QD
     Route: 048
     Dates: start: 20171115
  2. ZEJULA [Suspect]
     Active Substance: NIRAPARIB
     Indication: OVARIAN CANCER
     Dosage: 300 MG, QD
     Route: 048
     Dates: start: 20171010, end: 20171025

REACTIONS (9)
  - Performance status decreased [Unknown]
  - Emotional distress [Unknown]
  - Ageusia [Not Recovered/Not Resolved]
  - Asthenia [Not Recovered/Not Resolved]
  - Anosmia [Not Recovered/Not Resolved]
  - Dehydration [Not Recovered/Not Resolved]
  - Laboratory test abnormal [Unknown]
  - Platelet count decreased [Not Recovered/Not Resolved]
  - Fatigue [Not Recovered/Not Resolved]
